FAERS Safety Report 18366373 (Version 3)
Quarter: 2020Q4

REPORT INFORMATION
  Report Type: Spontaneous
  Country: DE (occurrence: DE)
  Receive Date: 20201009
  Receipt Date: 20201014
  Transmission Date: 20210114
  Serious: Yes (Death)
  Sender: FDA-Public Use
  Company Number: DE-PFIZER INC-2020386012

PATIENT
  Age: 25 Year
  Sex: Male

DRUGS (3)
  1. COCAINE [Suspect]
     Active Substance: COCAINE
     Indication: DRUG ABUSER
     Dosage: UNK
  2. MERCURY METAL [Suspect]
     Active Substance: MERCURY
     Dosage: UNK
     Route: 042
  3. MORPHINE SULFATE. [Suspect]
     Active Substance: MORPHINE SULFATE
     Indication: DRUG ABUSER
     Dosage: UNK (HE ^SHOT UP^)

REACTIONS (1)
  - Toxicity to various agents [Fatal]
